FAERS Safety Report 4867532-3 (Version None)
Quarter: 2005Q4

REPORT INFORMATION
  Report Type: 
  Country: None (occurrence: None)
  Receive Date: 20051222
  Receipt Date: 20051214
  Transmission Date: 20060501
  Serious: Yes (Other)
  Sender: FDA-Public Use
  Company Number: HQWYE097520DEC05

PATIENT
  Age: 54 Year
  Sex: Male

DRUGS (1)
  1. MYLOTARG [Suspect]
     Indication: ACUTE MYELOID LEUKAEMIA
     Dosage: A SINGLE 13 MG DOSE, INTRAVENOUS
     Route: 042
     Dates: start: 20050415, end: 20050415

REACTIONS (2)
  - HYPOTENSION [None]
  - INFUSION RELATED REACTION [None]
